FAERS Safety Report 21174509 (Version 1)
Quarter: 2022Q3

REPORT INFORMATION
  Report Type: Report from Study
  Country: US (occurrence: US)
  Receive Date: 20220805
  Receipt Date: 20220805
  Transmission Date: 20221027
  Serious: No
  Sender: FDA-Public Use
  Company Number: US-ACADIA PHARMACEUTICALS INC.-ACA-2022-PIM-002326

PATIENT
  Age: 71 Year
  Sex: Male

DRUGS (16)
  1. NUPLAZID [Suspect]
     Active Substance: PIMAVANSERIN TARTRATE
     Indication: Psychotic disorder
     Dosage: 34 MILLIGRAM, QD
     Route: 048
     Dates: start: 202011
  2. NUPLAZID [Suspect]
     Active Substance: PIMAVANSERIN TARTRATE
     Indication: Parkinson^s disease
  3. ALLOPURINOL [Concomitant]
     Active Substance: ALLOPURINOL
  4. COLCRYS [Concomitant]
     Active Substance: COLCHICINE
  5. AMLODIPINE [Concomitant]
     Active Substance: AMLODIPINE BESYLATE
  6. PLAVIX [Concomitant]
     Active Substance: CLOPIDOGREL BISULFATE
  7. MELATONIN [Concomitant]
     Active Substance: MELATONIN
  8. NAMENDA [Concomitant]
     Active Substance: MEMANTINE HYDROCHLORIDE
  9. REMERON [Concomitant]
     Active Substance: MIRTAZAPINE
  10. SELEGILINE [Concomitant]
     Active Substance: SELEGILINE
  11. TRAMADOL [Concomitant]
     Active Substance: TRAMADOL
  12. TUMS [Concomitant]
     Active Substance: CALCIUM CARBONATE
  13. ZOCOR [Concomitant]
     Active Substance: SIMVASTATIN
  14. CARBIDOPA\LEVODOPA [Concomitant]
     Active Substance: CARBIDOPA\LEVODOPA
  15. STALEVO [Concomitant]
     Active Substance: CARBIDOPA\ENTACAPONE\LEVODOPA
  16. HERBALS\TURMERIC [Concomitant]
     Active Substance: HERBALS\TURMERIC

REACTIONS (2)
  - Product dose omission issue [Not Recovered/Not Resolved]
  - Dementia [Not Recovered/Not Resolved]

NARRATIVE: CASE EVENT DATE: 20220701
